FAERS Safety Report 24002720 (Version 1)
Quarter: 2024Q2

REPORT INFORMATION
  Report Type: Spontaneous
  Country: GB (occurrence: GB)
  Receive Date: 20240624
  Receipt Date: 20240624
  Transmission Date: 20240716
  Serious: Yes (Other)
  Sender: FDA-Public Use
  Company Number: GB-CELLTRION INC.-2024GB015034

PATIENT

DRUGS (4)
  1. YUFLYMA [Suspect]
     Active Substance: ADALIMUMAB-AATY
     Indication: Crohn^s disease
     Dosage: 160MG, PATIENT HAD INITIAL TWO DOSES OF 80MG PENS GIVEN INTO SAME LEG (TOTAL DOSE 160MG AS INITIAL D
     Dates: start: 20240613
  2. RIVAROXABAN [Concomitant]
     Active Substance: RIVAROXABAN
  3. CHOLESTYRAMINE [Concomitant]
     Active Substance: CHOLESTYRAMINE
  4. BUDESONIDE [Concomitant]
     Active Substance: BUDESONIDE

REACTIONS (8)
  - Oropharyngeal pain [Unknown]
  - Paraesthesia oral [Unknown]
  - Abdominal pain [Unknown]
  - Chest pain [Unknown]
  - Injection site urticaria [Unknown]
  - Fatigue [Unknown]
  - Headache [Unknown]
  - Nausea [Unknown]

NARRATIVE: CASE EVENT DATE: 20240613
